FAERS Safety Report 7901947-1 (Version None)
Quarter: 2011Q4

REPORT INFORMATION
  Report Type: 
  Country: None (occurrence: None)
  Receive Date: 20111108
  Receipt Date: 20111027
  Transmission Date: 20120403
  Serious: Yes (Hospitalization, Other)
  Sender: FDA-Public Use
  Company Number: US-BAYER-2011-079277

PATIENT
  Age: 36 Year
  Sex: Female
  Weight: 57 kg

DRUGS (4)
  1. RHINOCORT [Concomitant]
     Dosage: UNK UNK, QD
  2. YASMIN [Suspect]
     Indication: CONTRACEPTION
     Dosage: UNK UNK, QD
     Route: 048
     Dates: start: 20021201, end: 20030330
  3. ISOCORT [Concomitant]
     Indication: ADRENAL INSUFFICIENCY
  4. ST. JOHN'S WORT [Concomitant]
     Indication: MOOD ALTERED
     Dosage: UNK
     Dates: start: 19980101

REACTIONS (12)
  - FEAR [None]
  - DEEP VEIN THROMBOSIS [None]
  - PAIN [None]
  - QUALITY OF LIFE DECREASED [None]
  - DYSPNOEA [None]
  - PSYCHOLOGICAL TRAUMA [None]
  - ANXIETY [None]
  - PULMONARY EMBOLISM [None]
  - EMOTIONAL DISTRESS [None]
  - PULMONARY INFARCTION [None]
  - INJURY [None]
  - FEAR OF DEATH [None]
